FAERS Safety Report 7902410-4 (Version None)
Quarter: 2011Q4

REPORT INFORMATION
  Report Type: 
  Country: None (occurrence: None)
  Receive Date: 20111108
  Receipt Date: 20111104
  Transmission Date: 20120403
  Serious: Yes (Hospitalization, Other)
  Sender: FDA-Public Use
  Company Number: AU-B.I. PHARMACEUTICALS,INC./RIDGEFIELD-2011-AU-01912AU

PATIENT
  Sex: Male
  Weight: 52 kg

DRUGS (13)
  1. PRADAXA [Suspect]
     Indication: ATRIAL FIBRILLATION
     Dosage: 220 MG
     Dates: end: 20111004
  2. PAROXETINE HCL [Suspect]
     Dosage: 10 MG
  3. C-FLOX [Concomitant]
     Dosage: 1000 MG
  4. PREDNISONE [Suspect]
     Dosage: 20 MG
  5. PRILOSEC [Concomitant]
     Dosage: 20 MG
  6. FLUTICASONE PROPIONATE/SALMETEROL [Concomitant]
     Route: 055
  7. ATROVENT [Concomitant]
     Route: 055
  8. RAMIPRIL [Concomitant]
     Dosage: 1.25 MG
  9. ASMOL [Concomitant]
     Route: 055
  10. LANOXIN [Concomitant]
     Dosage: 62.5 MCG
  11. LASIX [Concomitant]
     Dosage: 120 MG
  12. FOSAMAX [Concomitant]
     Dosage: 10 MG
  13. PANADOL OSTEO [Concomitant]

REACTIONS (5)
  - COLON CANCER [None]
  - HAEMOGLOBIN DECREASED [None]
  - RECTAL HAEMORRHAGE [None]
  - ANAEMIA [None]
  - HAEMATOCHEZIA [None]
